FAERS Safety Report 7504321-5 (Version None)
Quarter: 2011Q2

REPORT INFORMATION
  Report Type: 
  Country: None (occurrence: None)
  Receive Date: 20110525
  Receipt Date: 20110514
  Transmission Date: 20111010
  Serious: Yes (Other)
  Sender: FDA-Public Use
  Company Number: US-ELI_LILLY_AND_COMPANY-US201105004553

PATIENT
  Age: 70 Year
  Sex: Female

DRUGS (2)
  1. FORTEO                                  /USA/ [Concomitant]
     Indication: OSTEOPOROSIS
     Dosage: UNK, UNKNOWN
     Dates: start: 20091001, end: 20110101
  2. CYMBALTA [Suspect]
     Dosage: UNK, UNKNOWN

REACTIONS (1)
  - LOSS OF CONSCIOUSNESS [None]
